FAERS Safety Report 25881544 (Version 1)
Quarter: 2025Q4

REPORT INFORMATION
  Report Type: Spontaneous
  Country: US (occurrence: US)
  Receive Date: 20251005
  Receipt Date: 20251005
  Transmission Date: 20260117
  Serious: No
  Sender: ELI LILLY AND COMPANY
  Company Number: US-ELI_LILLY_AND_COMPANY-US202509019059

PATIENT
  Age: 69 Year
  Sex: Female

DRUGS (5)
  1. ZEPBOUND [Suspect]
     Active Substance: TIRZEPATIDE
     Indication: Sleep apnoea syndrome
     Dosage: 5 MG, UNKNOWN
     Route: 065
     Dates: start: 20250728
  2. ZEPBOUND [Suspect]
     Active Substance: TIRZEPATIDE
     Indication: Sleep apnoea syndrome
     Dosage: 5 MG, UNKNOWN
     Route: 065
     Dates: start: 20250728
  3. ZEPBOUND [Suspect]
     Active Substance: TIRZEPATIDE
     Indication: Sleep apnoea syndrome
     Dosage: 5 MG, UNKNOWN
     Route: 065
     Dates: start: 20250728
  4. ZEPBOUND [Suspect]
     Active Substance: TIRZEPATIDE
     Indication: Sleep apnoea syndrome
     Dosage: 5 MG, UNKNOWN
     Route: 065
     Dates: start: 20250728
  5. ATORVASTATIN [Concomitant]
     Active Substance: ATORVASTATIN
     Indication: Blood cholesterol increased
     Dosage: UNK, UNKNOWN
     Route: 065

REACTIONS (2)
  - Food craving [Unknown]
  - Hunger [Unknown]

NARRATIVE: CASE EVENT DATE: 20250901
